FAERS Safety Report 15607920 (Version 1)
Quarter: 2018Q4

REPORT INFORMATION
  Report Type: Spontaneous
  Country: GB (occurrence: GB)
  Receive Date: 20181112
  Receipt Date: 20181112
  Transmission Date: 20190205
  Serious: Yes (Disabling, Other)
  Sender: FDA-Public Use
  Company Number: GB-TEVA-2018-GB-974137

PATIENT
  Age: 31 Year
  Sex: Female
  Weight: 63.5 kg

DRUGS (3)
  1. TOPIRAMATE. [Suspect]
     Active Substance: TOPIRAMATE
     Route: 048
     Dates: start: 20180925
  2. TOPIRAMATE. [Suspect]
     Active Substance: TOPIRAMATE
     Indication: MIGRAINE WITH AURA
     Route: 048
  3. TOPIRAMATE. [Suspect]
     Active Substance: TOPIRAMATE
     Route: 048

REACTIONS (23)
  - Ear pain [Unknown]
  - Eye pain [Unknown]
  - Vision blurred [Unknown]
  - Memory impairment [Unknown]
  - Paraesthesia [Not Recovered/Not Resolved]
  - Headache [Unknown]
  - Thirst [Unknown]
  - Hypersomnia [Unknown]
  - Gingival bleeding [Not Recovered/Not Resolved]
  - Confusional state [Not Recovered/Not Resolved]
  - Tinnitus [Unknown]
  - Dysarthria [Not Recovered/Not Resolved]
  - Alopecia [Unknown]
  - Dizziness [Not Recovered/Not Resolved]
  - Deafness [Unknown]
  - Oropharyngeal pain [Unknown]
  - Muscle twitching [Not Recovered/Not Resolved]
  - Hypoaesthesia oral [Not Recovered/Not Resolved]
  - Fatigue [Not Recovered/Not Resolved]
  - Somnolence [Unknown]
  - Dyspepsia [Unknown]
  - Body temperature fluctuation [Unknown]
  - Dysgeusia [Unknown]
